FAERS Safety Report 9223960 (Version 2)
Quarter: 2014Q1

REPORT INFORMATION
  Report Type: Spontaneous
  Country: US (occurrence: US)
  Receive Date: 20130411
  Receipt Date: 20140219
  Transmission Date: 20141002
  Serious: No
  Sender: FDA-Public Use
  Company Number: US-BIOGENIDEC-2013BI032240

PATIENT
  Sex: Female

DRUGS (1)
  1. AVONEX [Suspect]
     Indication: MULTIPLE SCLEROSIS
     Route: 030
     Dates: start: 20030103

REACTIONS (4)
  - Amnesia [Unknown]
  - Memory impairment [Recovered/Resolved]
  - Haematoma [Recovered/Resolved]
  - Injection site pain [Recovered/Resolved]
